FAERS Safety Report 6385469-8 (Version None)
Quarter: 2009Q4

REPORT INFORMATION
  Report Type: 
  Country: None (occurrence: None)
  Receive Date: 20091002
  Receipt Date: 20080925
  Transmission Date: 20100525
  Serious: No
  Sender: FDA-Public Use
  Company Number: US-ASTRAZENECA-2008UW20238

PATIENT
  Age: 64 Year
  Sex: Female

DRUGS (8)
  1. ARIMIDEX [Suspect]
     Dates: start: 20070801
  2. LIPITOR [Concomitant]
     Dates: start: 20030601, end: 20080601
  3. CALCIUM [Concomitant]
     Route: 048
  4. CENTRUM [Concomitant]
     Dosage: DAILY
     Route: 048
  5. PRAVACHOL [Concomitant]
     Route: 048
     Dates: start: 20080601
  6. ASCORBIC ACID [Concomitant]
     Route: 048
  7. GLUCOSAMINE W/CHONDROITIN [Concomitant]
     Dosage: 500/400 MG DAILY
     Route: 048
  8. ACTONEL [Concomitant]
     Route: 048

REACTIONS (4)
  - GAIT DISTURBANCE [None]
  - HOT FLUSH [None]
  - PAIN IN EXTREMITY [None]
  - RESTLESS LEGS SYNDROME [None]
